FAERS Safety Report 4302281-1 (Version None)
Quarter: 2004Q1

REPORT INFORMATION
  Report Type: 
  Country: None (occurrence: None)
  Receive Date: 20040126
  Receipt Date: 20031010
  Transmission Date: 20041129
  Serious: No
  Sender: FDA-Public Use
  Company Number: USA031049535

PATIENT
  Sex: Male

DRUGS (1)
  1. STRATTERA [Suspect]
     Indication: DISTURBANCE IN ATTENTION
     Dosage: 2 DAG FORM/DAY
     Dates: start: 20030923

REACTIONS (8)
  - BODY TEMPERATURE DECREASED [None]
  - BURNING SENSATION [None]
  - CONSTIPATION [None]
  - DEFAECATION URGENCY [None]
  - DRUG INEFFECTIVE [None]
  - FEELING ABNORMAL [None]
  - NAUSEA [None]
  - VOMITING [None]
